FAERS Safety Report 15302235 (Version 1)
Quarter: 2018Q3

REPORT INFORMATION
  Report Type: Spontaneous
  Country: US (occurrence: US)
  Receive Date: 20180821
  Receipt Date: 20180821
  Transmission Date: 20181010
  Serious: Yes (Other)
  Sender: FDA-Public Use
  Company Number: US-PFIZER INC-2018332197

PATIENT
  Age: 66 Year
  Sex: Male

DRUGS (3)
  1. DIPHENYLHYDANTOIN [Interacting]
     Active Substance: PHENYTOIN
     Indication: SEIZURE
     Dosage: 300 MG/ DAY (FOR 10 YEARS)
  2. AMIODARONE HCL [Suspect]
     Active Substance: AMIODARONE HYDROCHLORIDE
     Indication: VENTRICULAR TACHYCARDIA
     Dosage: 800 MG/ DAY FOR TWO WEEKS
     Route: 048
  3. AMIODARONE HCL [Interacting]
     Active Substance: AMIODARONE HYDROCHLORIDE
     Dosage: 400 MG/DAY

REACTIONS (3)
  - Neurotoxicity [Recovered/Resolved]
  - Drug level increased [Recovered/Resolved]
  - Drug interaction [Recovered/Resolved]
